FAERS Safety Report 6280105-3 (Version None)
Quarter: 2009Q3

REPORT INFORMATION
  Report Type: 
  Country: None (occurrence: None)
  Receive Date: 20090723
  Receipt Date: 20090708
  Transmission Date: 20100115
  Serious: Yes (Other)
  Sender: FDA-Public Use
  Company Number: SK-GENENTECH-279865

PATIENT
  Age: 58 Year
  Sex: Male

DRUGS (13)
  1. AVASTIN [Suspect]
     Indication: NON-SMALL CELL LUNG CANCER
     Dosage: UNK
     Route: 065
     Dates: start: 20081229, end: 20090305
  2. CARBOPLATIN [Concomitant]
     Indication: DRUG USE FOR UNKNOWN INDICATION
     Dosage: UNK
     Dates: start: 20090119
  3. CISPLATIN [Concomitant]
     Indication: DRUG USE FOR UNKNOWN INDICATION
     Dosage: UNK
     Dates: start: 20081210
  4. ALIMTA [Concomitant]
     Indication: DRUG USE FOR UNKNOWN INDICATION
     Dosage: UNK
     Dates: start: 20081210
  5. GLYCERYL TRINITRATE [Concomitant]
     Indication: DRUG USE FOR UNKNOWN INDICATION
  6. ANOPYRIN [Concomitant]
     Indication: DRUG USE FOR UNKNOWN INDICATION
  7. PREDUCTAL [Concomitant]
     Indication: DRUG USE FOR UNKNOWN INDICATION
  8. GOPTEN [Concomitant]
     Indication: DRUG USE FOR UNKNOWN INDICATION
  9. CORVATON RETARD [Concomitant]
     Indication: DRUG USE FOR UNKNOWN INDICATION
  10. AGEN [Concomitant]
     Indication: DRUG USE FOR UNKNOWN INDICATION
  11. HELICID 20 [Concomitant]
     Indication: DRUG USE FOR UNKNOWN INDICATION
  12. LEXAURIN [Concomitant]
     Indication: DRUG USE FOR UNKNOWN INDICATION
  13. CODEINE SUL TAB [Concomitant]
     Indication: DRUG USE FOR UNKNOWN INDICATION

REACTIONS (1)
  - HYPERSENSITIVITY [None]
